FAERS Safety Report 22229041 (Version 1)
Quarter: 2023Q2

REPORT INFORMATION
  Report Type: Spontaneous
  Country: CN (occurrence: CN)
  Receive Date: 20230419
  Receipt Date: 20230419
  Transmission Date: 20230722
  Serious: Yes (Other)
  Sender: FDA-Public Use
  Company Number: None

PATIENT
  Age: 46 Year
  Sex: Male

DRUGS (3)
  1. CARBOPLATIN [Suspect]
     Active Substance: CARBOPLATIN
     Indication: Small cell lung cancer limited stage
     Dosage: AUC 5, DAY 1, EVERY 3 WEEKS
     Route: 065
     Dates: start: 202102
  2. ETOPOSIDE [Suspect]
     Active Substance: ETOPOSIDE
     Indication: Small cell lung cancer limited stage
     Dosage: DAYS 1 TO 3,  EVERY 3 WEEKS
     Route: 065
     Dates: start: 202102
  3. TISLELIZUMAB [Suspect]
     Active Substance: TISLELIZUMAB
     Indication: Small cell lung cancer limited stage
     Dosage: DAY 1,  EVERY 3 WEEKS
     Route: 065
     Dates: start: 202102

REACTIONS (1)
  - Hypothyroidism [Unknown]

NARRATIVE: CASE EVENT DATE: 20220401
